FAERS Safety Report 14780536 (Version 2)
Quarter: 2018Q2

REPORT INFORMATION
  Report Type: Spontaneous
  Country: US (occurrence: US)
  Receive Date: 20180419
  Receipt Date: 20180523
  Transmission Date: 20180711
  Serious: No
  Sender: FDA-Public Use
  Company Number: US-TAIHO ONCOLOGY INC-EU-2018-00506

PATIENT
  Sex: Female
  Weight: 54.48 kg

DRUGS (1)
  1. LONSURF [Suspect]
     Active Substance: TIPIRACIL HYDROCHLORIDE\TRIFLURIDINE
     Indication: RECTAL CANCER
     Dosage: CYCLE 4 STARTED ON 14MAR2018
     Route: 048
     Dates: start: 2017

REACTIONS (2)
  - Cytopenia [Unknown]
  - Alopecia [Unknown]
